FAERS Safety Report 15247436 (Version 1)
Quarter: 2018Q3

REPORT INFORMATION
  Report Type: Spontaneous
  Country: DE (occurrence: DE)
  Receive Date: 20180807
  Receipt Date: 20180807
  Transmission Date: 20181010
  Serious: No
  Sender: FDA-Public Use
  Company Number: DE-HORMOSAN-2018-02705

PATIENT
  Sex: Female

DRUGS (2)
  1. LEVETIRACETAM?HORMOSAN 500 MG FILMTABLETTEN [Suspect]
     Active Substance: LEVETIRACETAM
     Dosage: 1 DF, QD
     Route: 065
  2. LEVETIRACETAM?HORMOSAN 500 MG FILMTABLETTEN [Suspect]
     Active Substance: LEVETIRACETAM
     Indication: PRODUCT USED FOR UNKNOWN INDICATION
     Dosage: 1 DF, QD
     Route: 065
     Dates: start: 201711

REACTIONS (2)
  - Dysphagia [Unknown]
  - Circumstance or information capable of leading to medication error [Unknown]
